FAERS Safety Report 17462011 (Version 1)
Quarter: 2020Q1

REPORT INFORMATION
  Report Type: Spontaneous
  Country: US (occurrence: US)
  Receive Date: 20200226
  Receipt Date: 20200226
  Transmission Date: 20200409
  Serious: Yes (Hospitalization)
  Sender: FDA-Public Use
  Company Number: US-NOVOPROD-670965

PATIENT
  Age: 59 Year
  Sex: Female

DRUGS (5)
  1. SAXENDA [Suspect]
     Active Substance: LIRAGLUTIDE
     Dosage: 2.4 MG, QD
     Route: 058
     Dates: start: 20190325, end: 20190401
  2. SAXENDA [Suspect]
     Active Substance: LIRAGLUTIDE
     Indication: PRODUCT USED FOR UNKNOWN INDICATION
     Dosage: 0.6 MG, QD
     Route: 058
     Dates: start: 20190301, end: 20190308
  3. SAXENDA [Suspect]
     Active Substance: LIRAGLUTIDE
     Dosage: 1.2 MG, QD
     Route: 058
     Dates: start: 20190309, end: 20190316
  4. SAXENDA [Suspect]
     Active Substance: LIRAGLUTIDE
     Dosage: 1.8 MG, QD
     Route: 058
     Dates: start: 20190317, end: 20190324
  5. SAXENDA [Suspect]
     Active Substance: LIRAGLUTIDE
     Dosage: 3 MG
     Route: 058
     Dates: start: 20190402, end: 201905

REACTIONS (1)
  - Pancreatitis [Recovered/Resolved]

NARRATIVE: CASE EVENT DATE: 20190518
